FAERS Safety Report 9691056 (Version 2)
Quarter: 2013Q4

REPORT INFORMATION
  Report Type: Spontaneous
  Country: JP (occurrence: JP)
  Receive Date: 20131115
  Receipt Date: 20131230
  Transmission Date: 20140711
  Serious: Yes (Disabling)
  Sender: FDA-Public Use
  Company Number: JP-JNJFOC-20131108454

PATIENT
  Age: 72 Year
  Sex: Male
  Weight: 49 kg

DRUGS (11)
  1. XARELTO [Suspect]
     Indication: ATRIAL FIBRILLATION
     Route: 048
     Dates: start: 20131120
  2. XARELTO [Suspect]
     Indication: ATRIAL FIBRILLATION
     Route: 048
     Dates: start: 20131106, end: 20131108
  3. XARELTO [Suspect]
     Indication: CEREBROVASCULAR ACCIDENT PROPHYLAXIS
     Route: 048
     Dates: start: 20131120
  4. XARELTO [Suspect]
     Indication: CEREBROVASCULAR ACCIDENT PROPHYLAXIS
     Route: 048
     Dates: start: 20131106, end: 20131108
  5. SUNRYTHM [Suspect]
     Indication: ATRIAL FIBRILLATION
     Route: 048
     Dates: start: 20131106, end: 20131108
  6. MUCODYNE [Concomitant]
     Route: 048
     Dates: end: 20131108
  7. MUCOSOLVAN [Concomitant]
     Route: 048
     Dates: end: 20131108
  8. SPIRIVA [Concomitant]
     Route: 055
  9. HANP [Concomitant]
     Route: 065
     Dates: start: 20131112
  10. CATABON [Concomitant]
     Route: 065
     Dates: start: 20131112
  11. LASIX [Concomitant]
     Route: 065
     Dates: start: 20131112

REACTIONS (1)
  - Liver disorder [Recovered/Resolved]
